FAERS Safety Report 25174722 (Version 1)
Quarter: 2025Q2

REPORT INFORMATION
  Report Type: Spontaneous
  Country: US (occurrence: None)
  Receive Date: 20250408
  Receipt Date: 20250408
  Transmission Date: 20250717
  Serious: Yes (Death)
  Sender: FDA-CTU
  Company Number: None

PATIENT
  Age: 86 Year
  Sex: Male

DRUGS (9)
  1. ABIRATERONE [Suspect]
     Active Substance: ABIRATERONE
     Indication: Prostate cancer
     Dosage: 1000 MG/MG DAILY ORAL
     Route: 048
     Dates: start: 20230608, end: 20250407
  2. PREDNISONE [Concomitant]
     Active Substance: PREDNISONE
  3. AMLODIPINE BESYLATE [Concomitant]
     Active Substance: AMLODIPINE BESYLATE
  4. CALCITRIOL [Concomitant]
     Active Substance: CALCITRIOL
  5. FLECAINIDE [Concomitant]
     Active Substance: FLECAINIDE
  6. GLIPIZlDE ER [Concomitant]
  7. RAMIPRIL [Concomitant]
     Active Substance: RAMIPRIL
  8. SIMVASTATIN [Concomitant]
     Active Substance: SIMVASTATIN
  9. VITAMIN D [Concomitant]
     Active Substance: VITAMIN D NOS

REACTIONS (1)
  - Death [None]

NARRATIVE: CASE EVENT DATE: 20250407
